FAERS Safety Report 8840138 (Version 2)
Quarter: 2012Q4

REPORT INFORMATION
  Report Type: Report from Study
  Country: US (occurrence: US)
  Receive Date: 20121015
  Receipt Date: 20121018
  Transmission Date: 20130627
  Serious: Yes (Hospitalization)
  Sender: FDA-Public Use
  Company Number: US-ROCHE-1144651

PATIENT
  Age: 69 Year
  Sex: Male
  Weight: 103.7 kg

DRUGS (1)
  1. RITUXIMAB [Suspect]
     Indication: RHEUMATOID ARTHRITIS
     Dosage: date of the last dose prior to the event : 13/jun/2008, most recent dose prior to SAE : 1000 mg
     Route: 042
     Dates: start: 20071016

REACTIONS (1)
  - Pulmonary embolism [Not Recovered/Not Resolved]
